FAERS Safety Report 21378734 (Version 1)
Quarter: 2022Q3

REPORT INFORMATION
  Report Type: Spontaneous
  Country: BG (occurrence: BG)
  Receive Date: 20220927
  Receipt Date: 20220927
  Transmission Date: 20221026
  Serious: Yes (Other)
  Sender: FDA-Public Use
  Company Number: BG-SUN PHARMACEUTICAL INDUSTRIES LTD-2022R1-355806

PATIENT
  Age: 54 Year
  Sex: Male

DRUGS (4)
  1. NINTEDANIB [Suspect]
     Active Substance: NINTEDANIB
     Indication: Interstitial lung disease
     Dosage: 200 MILLIGRAM, BID ON DAYS 2-21 EVERY 3 WEEKS
     Route: 048
     Dates: start: 20210705, end: 20210908
  2. NINTEDANIB [Suspect]
     Active Substance: NINTEDANIB
     Indication: Lung adenocarcinoma
     Dosage: 200 MILLIGRAM, BID ON DAYS 2-21 EVERY 3 WEEKS
     Route: 048
     Dates: start: 20211008, end: 20211208
  3. DOCETAXEL [Suspect]
     Active Substance: DOCETAXEL
     Indication: Lung adenocarcinoma
     Dosage: 75 MILLIGRAM/SQ. METER ON DAY 1
     Route: 042
     Dates: start: 20210705, end: 20210908
  4. DOCETAXEL [Suspect]
     Active Substance: DOCETAXEL
     Indication: Interstitial lung disease
     Dosage: 75 MILLIGRAM/SQ. METER ON DAY 1
     Route: 042
     Dates: start: 20211008, end: 20211208

REACTIONS (3)
  - Neuropathy peripheral [Unknown]
  - Therapy partial responder [Unknown]
  - Rash pruritic [Recovered/Resolved]
